FAERS Safety Report 4668777-8 (Version None)
Quarter: 2005Q2

REPORT INFORMATION
  Report Type: 
  Country: None (occurrence: None)
  Receive Date: 20050519
  Receipt Date: 20050505
  Transmission Date: 20051028
  Serious: No
  Sender: FDA-Public Use
  Company Number: BR-2005-007432

PATIENT
  Age: 41 Year
  Sex: Female

DRUGS (5)
  1. YASMIN [Suspect]
     Dosage: 1TAB(S), UNK, ORAL
     Route: 048
     Dates: start: 20040101
  2. ANTIINFLAMMATORY [Concomitant]
  3. CHLOROQUINE (CHLOROQUINE) [Concomitant]
  4. CEPHALEXIN [Concomitant]
  5. BERLISON (HYDROCORTISONE) [Concomitant]

REACTIONS (2)
  - SCAR [None]
  - TYMPANIC MEMBRANE PERFORATION [None]
